FAERS Safety Report 6956933-5 (Version None)
Quarter: 2010Q3

REPORT INFORMATION
  Report Type: 
  Country: None (occurrence: None)
  Receive Date: 20100826
  Receipt Date: 20100819
  Transmission Date: 20110219
  Serious: Yes (Death, Hospitalization)
  Sender: FDA-Public Use
  Company Number: UTC-001331

PATIENT
  Sex: Female
  Weight: 59.1 kg

DRUGS (15)
  1. REMODULIN [Suspect]
     Indication: PULMONARY ARTERIAL HYPERTENSION
     Dosage: 50.4 UG/KG (0.035 UG/KG, 1 IN 1 MIN), SUBCUTANEOUS
     Route: 058
     Dates: start: 20100301
  2. FOSAMAX [Concomitant]
  3. AZATHIOPRINE [Concomitant]
  4. PREDNISONE [Concomitant]
  5. COUMADIN [Concomitant]
  6. REVATIO [Concomitant]
  7. CITALOPRAM HYDROBROMIDE [Concomitant]
  8. POTASSIUM CHLORIDE [Concomitant]
  9. METOLAZONE [Concomitant]
  10. FOLIC ACID [Concomitant]
  11. CALCIUM CARBONATE [Concomitant]
  12. PERCOCET [Concomitant]
  13. ASPIRIN [Concomitant]
  14. COLACE (DOCUSATE SODIUM) [Concomitant]
  15. TRACLEER [Concomitant]

REACTIONS (3)
  - PULMONARY ARTERIAL HYPERTENSION [None]
  - RESPIRATORY FAILURE [None]
  - SEPSIS [None]
